FAERS Safety Report 23429772 (Version 1)
Quarter: 2024Q1

REPORT INFORMATION
  Report Type: Spontaneous
  Country: US (occurrence: US)
  Receive Date: 20240122
  Receipt Date: 20240122
  Transmission Date: 20240410
  Serious: No
  Sender: FDA-Public Use
  Company Number: US-INSUD PHARMA-2401US00171

PATIENT

DRUGS (3)
  1. PROGESTERONE [Suspect]
     Active Substance: PROGESTERONE
     Indication: Rheumatoid arthritis
     Dosage: 7 CAPSULES IN THE MORNING AND 7 CAPSULES AT NIGHT
     Route: 048
     Dates: start: 202401, end: 202401
  2. PROGESTERONE [Suspect]
     Active Substance: PROGESTERONE
     Indication: Progesterone deficiency
  3. ESTROGENS [Concomitant]
     Active Substance: ESTROGENS
     Dosage: LOW DOSE IN THE MORNING BEFORE WORK

REACTIONS (9)
  - Malaise [Recovered/Resolved]
  - Bone pain [Recovered/Resolved]
  - Hyperhidrosis [Recovered/Resolved]
  - Insomnia [Recovered/Resolved]
  - Hypersensitivity [Recovered/Resolved]
  - Hypervigilance [Recovered/Resolved]
  - Product substitution issue [Unknown]
  - Off label use [Unknown]
  - Intentional product use issue [Unknown]

NARRATIVE: CASE EVENT DATE: 20240101
